FAERS Safety Report 5242830-2 (Version None)
Quarter: 2007Q1

REPORT INFORMATION
  Report Type: 
  Country: None (occurrence: None)
  Receive Date: 20070221
  Receipt Date: 20070209
  Transmission Date: 20070707
  Serious: Yes (Other)
  Sender: FDA-Public Use
  Company Number: GB-MERCK-0612GBR00024

PATIENT
  Sex: Male

DRUGS (6)
  1. DECADRON [Suspect]
     Indication: BRAIN OEDEMA
     Route: 048
  2. DESFLURANE [Concomitant]
     Route: 065
  3. FENTANYL [Concomitant]
     Route: 065
  4. METARAMINOL [Concomitant]
     Route: 065
  5. PROPOFOL [Concomitant]
     Route: 065
  6. VECURONIUM BROMIDE [Concomitant]
     Route: 065

REACTIONS (1)
  - PSYCHOTIC DISORDER [None]
